FAERS Safety Report 24669445 (Version 1)
Quarter: 2024Q4

REPORT INFORMATION
  Report Type: Spontaneous
  Country: NL (occurrence: NL)
  Receive Date: 20241127
  Receipt Date: 20241127
  Transmission Date: 20250115
  Serious: Yes (Hospitalization)
  Sender: TEVA
  Company Number: None

PATIENT
  Age: 79 Year
  Sex: Male
  Weight: 92 kg

DRUGS (3)
  1. CAPECITABINE [Suspect]
     Active Substance: CAPECITABINE
     Indication: Rectal cancer metastatic
     Dosage: 5 PIECES OF 500MG TWICE A DAY, TABLET FO / BRAND NAME NOT SPECIFIED
     Route: 048
     Dates: start: 20240614
  2. HALOPERIDOL [Concomitant]
     Active Substance: HALOPERIDOL
     Indication: Product used for unknown indication
     Dosage: TABLET 1MG, 1 PIECE 2 TIMES A DAY, BRAND NAME NOT SPECIFIED
     Route: 065
  3. AVASTIN [Suspect]
     Active Substance: BEVACIZUMAB
     Indication: Rectal cancer metastatic
     Dosage: 7.5 MG/KG, TOTAL 687.50 MG, INFVLST CONC 25MG/ML VIAL 4ML
     Route: 065
     Dates: start: 20240614

REACTIONS (1)
  - Delirium [Recovering/Resolving]
